FAERS Safety Report 22163289 (Version 1)
Quarter: 2023Q2

REPORT INFORMATION
  Report Type: Spontaneous
  Country: US (occurrence: US)
  Receive Date: 20230401
  Receipt Date: 20230401
  Transmission Date: 20230721
  Serious: No
  Sender: FDA-Public Use
  Company Number: US-SA-SAC20230330000144

PATIENT
  Age: 42 Year
  Sex: Female

DRUGS (1)
  1. ELOCTATE [Suspect]
     Active Substance: EFMOROCTOCOG ALFA
     Dosage: 3000 U
     Route: 065

REACTIONS (1)
  - Oligomenorrhoea [Unknown]

NARRATIVE: CASE EVENT DATE: 20230301
